FAERS Safety Report 9421971 (Version 1)
Quarter: 2013Q3

REPORT INFORMATION
  Report Type: Spontaneous
  Country: GB (occurrence: GB)
  Receive Date: 20130726
  Receipt Date: 20130726
  Transmission Date: 20140515
  Serious: Yes (Hospitalization)
  Sender: FDA-Public Use
  Company Number: GB-BAYER-2013-087718

PATIENT
  Age: 21 Year
  Sex: Female
  Weight: 60.32 kg

DRUGS (2)
  1. YASMIN, FILM-COATED TABLETS, 0.03 MG/3 MG [Suspect]
     Indication: CONTRACEPTION
     Dosage: UNK
     Route: 048
     Dates: end: 20121223
  2. BRICANYL [Concomitant]

REACTIONS (1)
  - Pneumothorax spontaneous [Recovered/Resolved with Sequelae]
